FAERS Safety Report 15790133 (Version 1)
Quarter: 2019Q1

REPORT INFORMATION
  Report Type: Spontaneous
  Country: US (occurrence: US)
  Receive Date: 20190104
  Receipt Date: 20190104
  Transmission Date: 20190417
  Serious: No
  Sender: FDA-Public Use
  Company Number: US-SA-2019SA000648

PATIENT
  Age: 40 Year
  Sex: Female

DRUGS (11)
  1. FLAXSEED [Concomitant]
     Active Substance: FLAX SEED
  2. ZYRTEC [Concomitant]
     Active Substance: CETIRIZINE HYDROCHLORIDE
  3. DUPILUMAB [Suspect]
     Active Substance: DUPILUMAB
     Indication: MULTIPLE SCLEROSIS
     Dosage: 300 MG, QOW
     Route: 058
     Dates: start: 20181205
  4. MULTI-VITAMINS VITAFIT [Concomitant]
     Active Substance: VITAMINS
  5. AMBIEN CR [Concomitant]
     Active Substance: ZOLPIDEM TARTRATE
  6. CALCIUM + VIT D [Concomitant]
     Active Substance: CALCIUM\VITAMIN D
  7. CLONAZEPAM. [Concomitant]
     Active Substance: CLONAZEPAM
  8. SUMATRIPTAN. [Concomitant]
     Active Substance: SUMATRIPTAN
  9. GABAPENTIN. [Concomitant]
     Active Substance: GABAPENTIN
     Dosage: UNK
  10. IBUPROFEN. [Concomitant]
     Active Substance: IBUPROFEN
  11. FISH OIL [Concomitant]
     Active Substance: FISH OIL

REACTIONS (2)
  - Product use in unapproved indication [Unknown]
  - Dermatitis [Not Recovered/Not Resolved]
